FAERS Safety Report 10563106 (Version 1)
Quarter: 2014Q4

REPORT INFORMATION
  Report Type: Spontaneous
  Country: US (occurrence: None)
  Receive Date: 20141103
  Receipt Date: 20141103
  Transmission Date: 20150529
  Serious: Yes (Hospitalization)
  Sender: FDA-Public Use
  Company Number: None

PATIENT
  Age: 60 Year
  Sex: Female
  Weight: 52.62 kg

DRUGS (1)
  1. MIRALAX [Suspect]
     Active Substance: POLYETHYLENE GLYCOL 3350
     Indication: COLONOSCOPY
     Dosage: DISSOLVE 238G + 64 OZ GATORA; HALF OF ABOVE SOLU
     Route: 048

REACTIONS (5)
  - Heart rate irregular [None]
  - Asthenia [None]
  - Diarrhoea [None]
  - Hyperhidrosis [None]
  - Fall [None]

NARRATIVE: CASE EVENT DATE: 20141021
